FAERS Safety Report 6871166 (Version 4)
Quarter: 2020Q3

REPORT INFORMATION
  Report Type: Report from Study
  Country: ES (occurrence: ES)
  Receive Date: 20081231
  Receipt Date: 20090923
  Transmission Date: 20201104
  Serious: Yes (Death, Hospitalization)
  Sender: FDA-Public Use
  Company Number: ES-WYE-H07435808

PATIENT
  Age: 71 Year
  Sex: Male
  Weight: 73 kg

DRUGS (3)
  1. INTERFERON ALFA NOS [Suspect]
     Active Substance: INTERFERON ALFA-2A OR INTERFERON ALFA-2B
     Indication: RENAL CANCER
     Dosage: 6,000,000 UI EVERY 2 WEEKS
     Route: 058
     Dates: start: 20081124, end: 20081209
  2. AMIODARONE HYDROCHLORIDE. [Concomitant]
     Active Substance: AMIODARONE HYDROCHLORIDE
     Indication: ARRHYTHMIA
     Route: 042
     Dates: start: 20081221, end: 20081228
  3. AVASTIN [Suspect]
     Active Substance: BEVACIZUMAB
     Indication: RENAL CANCER
     Route: 042
     Dates: start: 20081124, end: 20081209

REACTIONS (4)
  - Retroperitoneal infection [Not Recovered/Not Resolved]
  - Haemorrhage [Fatal]
  - Atrial fibrillation [Recovered/Resolved]
  - Haematoma infection [Not Recovered/Not Resolved]

NARRATIVE: CASE EVENT DATE: 20081227
